FAERS Safety Report 20641086 (Version 4)
Quarter: 2022Q2

REPORT INFORMATION
  Report Type: Report from Study
  Country: SG (occurrence: SG)
  Receive Date: 20220327
  Receipt Date: 20220428
  Transmission Date: 20220721
  Serious: Yes (Hospitalization)
  Sender: FDA-Public Use
  Company Number: SG-BRISTOL-MYERS SQUIBB COMPANY-BMS-2022-040275

PATIENT
  Sex: Male
  Weight: 57.4 kg

DRUGS (2)
  1. NIVOLUMAB [Suspect]
     Active Substance: NIVOLUMAB
     Indication: Non-small cell lung cancer
     Route: 042
     Dates: start: 20220223, end: 20220223
  2. ADG-106 [Suspect]
     Active Substance: ADG-106
     Indication: Non-small cell lung cancer
     Route: 042
     Dates: start: 20220223, end: 20220223

REACTIONS (1)
  - COVID-19 [Recovered/Resolved]

NARRATIVE: CASE EVENT DATE: 20220301
